FAERS Safety Report 8673104 (Version 4)
Quarter: 2012Q4

REPORT INFORMATION
  Report Type: Report from Study
  Country: JP (occurrence: JP)
  Receive Date: 20120719
  Receipt Date: 20121105
  Transmission Date: 20130627
  Serious: Yes (Death, Hospitalization)
  Sender: FDA-Public Use
  Company Number: JP-EISAI INC-E7389-02688-CLI-JP

PATIENT
  Age: 60 Year
  Sex: Female
  Weight: 51 kg

DRUGS (11)
  1. HALAVEN [Suspect]
     Indication: BREAST CANCER RECURRENT
     Route: 041
     Dates: start: 20111209, end: 20120106
  2. HALAVEN [Suspect]
     Indication: METASTASES TO BONE
  3. FULCALIQ [Concomitant]
     Indication: PROPHYLAXIS
     Route: 041
  4. HEPARIN SODIUM [Concomitant]
     Indication: PROPHYLAXIS
     Route: 041
  5. SEISHOKU [Concomitant]
     Indication: PROPHYLAXIS
     Route: 041
  6. LOXONIN [Concomitant]
     Indication: PAIN
     Route: 048
  7. MOHRUS [Concomitant]
     Indication: PAIN
  8. NORVASC [Concomitant]
     Indication: HYPERTENSION
     Route: 048
  9. HYALEIN [Concomitant]
     Indication: KERATITIS
  10. FLAVITAN [Concomitant]
     Indication: KERATITIS
  11. MUCOSTA [Concomitant]
     Indication: PROPHYLAXIS
     Route: 048

REACTIONS (2)
  - Sepsis [Fatal]
  - Meningitis [Not Recovered/Not Resolved]
